FAERS Safety Report 5892122-3 (Version None)
Quarter: 2008Q3

REPORT INFORMATION
  Report Type: 
  Country: None (occurrence: None)
  Receive Date: 20080918
  Receipt Date: 20080918
  Transmission Date: 20090109
  Serious: Yes (Other)
  Sender: FDA-Public Use
  Company Number: None

PATIENT
  Age: 65 Year
  Sex: Male
  Weight: 90.7194 kg

DRUGS (2)
  1. WELCHOL [Suspect]
     Indication: DIARRHOEA
     Dosage: 2 TABLETS 2 X DAY PO
     Route: 048
     Dates: start: 20080714, end: 20080904
  2. WELCHOL [Suspect]
     Indication: IRRITABLE BOWEL SYNDROME
     Dosage: 2 TABLETS 2 X DAY PO
     Route: 048
     Dates: start: 20080714, end: 20080904

REACTIONS (2)
  - BACK PAIN [None]
  - MYALGIA [None]
